FAERS Safety Report 22388619 (Version 1)
Quarter: 2023Q2

REPORT INFORMATION
  Report Type: Spontaneous
  Country: US (occurrence: US)
  Receive Date: 20230531
  Receipt Date: 20230531
  Transmission Date: 20230721
  Serious: Yes (Life-Threatening, Hospitalization)
  Sender: FDA-Public Use
  Company Number: US-CELGENE-USA-20201202006

PATIENT
  Age: 83 Year
  Sex: Male
  Weight: 68.2 kg

DRUGS (28)
  1. AZACITIDINE [Suspect]
     Active Substance: AZACITIDINE
     Indication: Myelodysplastic syndrome
     Dosage: 75 MILLIGRAM/SQ. METER (DAYS 1-9, 7 DAYS WITHIN THE FIRST 9 CALENDAR DAYS PER 28-DAY CYCLE)
     Route: 058
     Dates: start: 20201116, end: 20201129
  2. AZACITIDINE [Suspect]
     Active Substance: AZACITIDINE
     Dosage: 75 MILLIGRAM/SQ. METER (DAYS 1-9, 7 DAYS WITHIN THE FIRST 9 CALENDAR DAYS PER 28-DAY CYCLE)
     Route: 058
     Dates: start: 20201221
  3. VENETOCLAX [Suspect]
     Active Substance: VENETOCLAX
     Indication: Myelodysplastic syndrome
     Dosage: 400 MILLIGRAM
     Route: 048
     Dates: start: 20201116
  4. PROCRIT [Concomitant]
     Active Substance: ERYTHROPOIETIN
     Indication: Anaemia
     Dosage: 6000 MILLILITER
     Route: 058
     Dates: start: 20180713
  5. PROCRIT [Concomitant]
     Active Substance: ERYTHROPOIETIN
     Dosage: 60000 IU (INTERNATIONAL UNIT)
     Route: 058
     Dates: start: 20200928, end: 20200928
  6. PROCRIT [Concomitant]
     Active Substance: ERYTHROPOIETIN
     Dosage: 60000 IU (INTERNATIONAL UNIT)
     Route: 058
     Dates: start: 20201005, end: 20201005
  7. PROCRIT [Concomitant]
     Active Substance: ERYTHROPOIETIN
     Dosage: 60000 IU (INTERNATIONAL UNIT)
     Route: 058
     Dates: start: 20201019, end: 20201019
  8. PROCRIT [Concomitant]
     Active Substance: ERYTHROPOIETIN
     Dosage: 60000 IU (INTERNATIONAL UNIT)
     Route: 058
     Dates: start: 20201026, end: 20201026
  9. PROCRIT [Concomitant]
     Active Substance: ERYTHROPOIETIN
     Dosage: 60000 IU (INTERNATIONAL UNIT)
     Route: 058
     Dates: start: 20201102, end: 20201102
  10. PROCRIT [Concomitant]
     Active Substance: ERYTHROPOIETIN
     Dosage: 60000 IU (INTERNATIONAL UNIT)
     Route: 058
     Dates: start: 20201109, end: 20201109
  11. PROCRIT [Concomitant]
     Active Substance: ERYTHROPOIETIN
     Dosage: 60000 IU (INTERNATIONAL UNIT)
     Route: 058
     Dates: start: 20201116, end: 20201116
  12. PROCRIT [Concomitant]
     Active Substance: ERYTHROPOIETIN
     Dosage: 60000 IU (INTERNATIONAL UNIT)
     Route: 058
     Dates: start: 20201123, end: 20201123
  13. PROCRIT [Concomitant]
     Active Substance: ERYTHROPOIETIN
     Dosage: 60000 IU (INTERNATIONAL UNIT)
     Route: 058
     Dates: start: 20201130, end: 20201130
  14. PROCRIT [Concomitant]
     Active Substance: ERYTHROPOIETIN
     Dosage: 60000 IU (INTERNATIONAL UNIT)
     Route: 058
     Dates: start: 20210713
  15. LOSARTAN [Concomitant]
     Active Substance: LOSARTAN
     Indication: Hypertension
     Dosage: 100 MILLIGRAM
     Route: 048
     Dates: start: 20170701
  16. AMLODIPINE [Concomitant]
     Active Substance: AMLODIPINE BESYLATE
     Indication: Hypertension
     Dosage: 7.5 MILLIGRAM
     Route: 048
     Dates: start: 20170701
  17. ATORVASTATIN [Concomitant]
     Active Substance: ATORVASTATIN
     Indication: Type IIa hyperlipidaemia
     Dosage: 80 MILLIGRAM
     Route: 048
     Dates: start: 20170701
  18. JADENU [Concomitant]
     Active Substance: DEFERASIROX
     Indication: Serum ferritin increased
     Dosage: 360 MILLIGRAM
     Route: 048
     Dates: start: 20200730
  19. VITAMIN D3 [Concomitant]
     Active Substance: CHOLECALCIFEROL
     Indication: Anaemia
     Dosage: 25 MICROGRAM
     Route: 048
     Dates: start: 20200901
  20. VITAMIN B12 [Concomitant]
     Active Substance: CYANOCOBALAMIN
     Indication: Vitamin B complex deficiency
     Dosage: 1000 MILLILITER
     Route: 058
     Dates: start: 20160513
  21. ACETAMINOPHEN [Concomitant]
     Active Substance: ACETAMINOPHEN
     Indication: Product used for unknown indication
     Dosage: FREQUENCY TEXT: NOT PROVIDED
     Dates: start: 2020, end: 2020
  22. ALBUTEROL [Concomitant]
     Active Substance: ALBUTEROL
     Indication: Product used for unknown indication
     Dosage: FREQUENCY TEXT: NOT PROVIDED
     Dates: start: 2020, end: 2020
  23. OXYGEN [Concomitant]
     Active Substance: OXYGEN
     Indication: Dyspnoea
     Dosage: FREQUENCY TEXT: NOT PROVIDED
     Dates: start: 2020, end: 2020
  24. CEFEPIME [Concomitant]
     Active Substance: CEFEPIME HYDROCHLORIDE
     Indication: Product used for unknown indication
     Dosage: FREQUENCY TEXT: NOT PROVIDED
     Dates: start: 2020, end: 2020
  25. VANCOMYCIN [Concomitant]
     Active Substance: VANCOMYCIN
     Indication: Product used for unknown indication
     Dosage: FREQUENCY TEXT: NOT PROVIDED
     Dates: start: 2020, end: 2020
  26. ROBITUSSIN (GUAIFENESIN) [Concomitant]
     Active Substance: GUAIFENESIN
     Indication: Product used for unknown indication
     Dosage: FREQUENCY TEXT: NOT PROVIDED
     Dates: start: 2020, end: 2020
  27. LEVOFLOXACIN [Concomitant]
     Active Substance: LEVOFLOXACIN
     Indication: Product used for unknown indication
     Dosage: FREQUENCY TEXT: NOT PROVIDED
     Dates: start: 2020, end: 2020
  28. IMODIUM [Concomitant]
     Active Substance: LOPERAMIDE HYDROCHLORIDE
     Indication: Diarrhoea
     Dosage: FREQUENCY TEXT: AS REQUIRED
     Route: 048
     Dates: start: 20201123, end: 20201123

REACTIONS (1)
  - Pneumonia [Recovered/Resolved]

NARRATIVE: CASE EVENT DATE: 20201125
